FAERS Safety Report 15434958 (Version 1)
Quarter: 2018Q3

REPORT INFORMATION
  Report Type: Spontaneous
  Country: US (occurrence: US)
  Receive Date: 20180923
  Receipt Date: 20180923
  Transmission Date: 20181010
  Serious: Yes (Disabling)
  Sender: FDA-Public Use
  Company Number: None

PATIENT
  Age: 23 Year
  Sex: Female
  Weight: 68.04 kg

DRUGS (3)
  1. MIRENA [Suspect]
     Active Substance: LEVONORGESTREL
  2. SYNTHROID [Concomitant]
     Active Substance: LEVOTHYROXINE SODIUM
  3. MIRENA [Suspect]
     Active Substance: LEVONORGESTREL
     Dates: start: 20161214, end: 20180905

REACTIONS (2)
  - Dyspareunia [None]
  - Ovarian cyst [None]

NARRATIVE: CASE EVENT DATE: 20170101
